FAERS Safety Report 5159655-9 (Version None)
Quarter: 2006Q4

REPORT INFORMATION
  Report Type: 
  Country: None (occurrence: None)
  Receive Date: 20061129
  Receipt Date: 20061117
  Transmission Date: 20070319
  Serious: Yes (Hospitalization)
  Sender: FDA-Public Use
  Company Number: PHNU2006DE03834

PATIENT
  Age: 6 Year
  Sex: Female
  Weight: 16 kg

DRUGS (6)
  1. CYCLOSPORINE [Suspect]
     Indication: RENAL TRANSPLANT
     Route: 048
  2. CYCLOSPORINE [Suspect]
     Dosage: 60 MG DAILY
     Dates: start: 20060816, end: 20060818
  3. MYCOPHENOLATE MOFETIL [Concomitant]
     Indication: RENAL TRANSPLANT
  4. PREDNISONE TAB [Concomitant]
     Indication: RENAL TRANSPLANT
  5. ATENOLOL [Concomitant]
     Indication: HYPERTENSION
  6. ENALAPRIL MALEATE [Concomitant]
     Indication: HYPERTENSION

REACTIONS (13)
  - APHTHOUS STOMATITIS [None]
  - COORDINATION ABNORMAL [None]
  - DIET REFUSAL [None]
  - DYSPHAGIA [None]
  - GAIT DISTURBANCE [None]
  - GROWTH RETARDATION [None]
  - HYPERTENSION [None]
  - INTENTION TREMOR [None]
  - MOTOR DYSFUNCTION [None]
  - MUTISM [None]
  - NEUROTOXICITY [None]
  - NUTRITIONAL CONDITION ABNORMAL [None]
  - SPEECH DISORDER [None]
